FAERS Safety Report 6166555-4 (Version None)
Quarter: 2009Q2

REPORT INFORMATION
  Report Type: 
  Country: None (occurrence: None)
  Receive Date: 20090424
  Receipt Date: 20090415
  Transmission Date: 20091009
  Serious: Yes (Hospitalization)
  Sender: FDA-Public Use
  Company Number: BR-ROCHE-615917

PATIENT
  Sex: Male
  Weight: 57 kg

DRUGS (11)
  1. METHOXY POLYETHYLENE GLYCOL-EPOETIN BETA [Suspect]
     Dosage: DOSAGE FORM: PSF LAST DOSE PRIOR TO SAE: 16 OCTOBER 2008
     Route: 058
     Dates: start: 20080529
  2. METHOXY POLYETHYLENE GLYCOL-EPOETIN BETA [Suspect]
     Dosage: LAST DOSE PRIOR TO SAE: 13 NOVEMBER 2008; DOSAGE FORM: PSF
     Route: 058
     Dates: start: 20081113
  3. METHOXY POLYETHYLENE GLYCOL-EPOETIN BETA [Suspect]
     Dosage: DOSE FORM: PSF; LAST DOSE PRIOR TO SAE: 08 JANUARY 2009.
     Route: 058
     Dates: start: 20081211
  4. EPOETIN ALPHA [Suspect]
     Route: 065
  5. VALSARTAN [Suspect]
     Indication: DRUG USE FOR UNKNOWN INDICATION
     Route: 065
     Dates: start: 20061116
  6. AMLODIPINE [Suspect]
     Indication: DRUG USE FOR UNKNOWN INDICATION
     Route: 065
     Dates: start: 20061116
  7. FLUOXETINE [Suspect]
     Indication: DRUG USE FOR UNKNOWN INDICATION
     Dosage: DRUG NAME REPORTED: FLUOXETINA
     Route: 065
     Dates: start: 20070101, end: 20090221
  8. DOMPERIDONE [Suspect]
     Indication: DRUG USE FOR UNKNOWN INDICATION
     Route: 065
     Dates: start: 20070719
  9. RANITIDINE [Suspect]
     Indication: DRUG USE FOR UNKNOWN INDICATION
     Route: 065
     Dates: start: 20070830
  10. INSULIN [Suspect]
     Indication: DRUG USE FOR UNKNOWN INDICATION
     Dosage: TDD: 12 UI; DRUG NAME: INSULIN NPA
     Route: 065
     Dates: start: 19850101
  11. OMEPRAZOL [Concomitant]
     Dates: start: 20070830

REACTIONS (1)
  - CHOLESTASIS [None]
